FAERS Safety Report 9144232 (Version 1)
Quarter: 2013Q1

REPORT INFORMATION
  Report Type: Spontaneous
  Country: US (occurrence: US)
  Receive Date: 20130306
  Receipt Date: 20130306
  Transmission Date: 20140127
  Serious: No
  Sender: FDA-Public Use
  Company Number: US-ASTRAZENECA-2013SE12724

PATIENT
  Age: 57 Year
  Sex: Female
  Weight: 72.6 kg

DRUGS (11)
  1. PULMICORT FLEXHALER [Suspect]
     Indication: ASTHMA
     Route: 055
     Dates: start: 2010, end: 201212
  2. XOPENEX [Concomitant]
     Indication: ASTHMA
  3. SYNTHROID [Concomitant]
     Indication: THYROID DISORDER
  4. LIOTHYRONINE [Concomitant]
     Indication: THYROID DISORDER
  5. SINGULAIR [Concomitant]
     Indication: ASTHMA
  6. XYZOL [Concomitant]
     Indication: HYPERSENSITIVITY
  7. XYZOL [Concomitant]
     Indication: URTICARIA
  8. XYZOL [Concomitant]
     Indication: ASTHMA
  9. CIMBALTA [Concomitant]
     Indication: FIBROMYALGIA
  10. KLONEZAPAM [Concomitant]
     Indication: RESTLESS LEGS SYNDROME
  11. NASOCORT [Concomitant]
     Indication: RHINITIS ALLERGIC

REACTIONS (11)
  - Facial pain [Not Recovered/Not Resolved]
  - Rhinitis allergic [Not Recovered/Not Resolved]
  - Nasopharyngitis [Not Recovered/Not Resolved]
  - Nausea [Not Recovered/Not Resolved]
  - Ear pain [Not Recovered/Not Resolved]
  - Eye inflammation [Unknown]
  - Fibromyalgia [Unknown]
  - Chronic fatigue syndrome [Unknown]
  - Lung disorder [Unknown]
  - Lactation disorder [Unknown]
  - Arthritis [Unknown]
